FAERS Safety Report 24754205 (Version 1)
Quarter: 2024Q4

REPORT INFORMATION
  Report Type: Spontaneous
  Country: RU (occurrence: RU)
  Receive Date: 20241219
  Receipt Date: 20241219
  Transmission Date: 20250115
  Serious: Yes (Other)
  Sender: ABBVIE
  Company Number: RU-ABBVIE-6030595

PATIENT
  Age: 61 Year
  Sex: Female
  Weight: 77 kg

DRUGS (11)
  1. GLECAPREVIR\PIBRENTASVIR [Suspect]
     Active Substance: GLECAPREVIR\PIBRENTASVIR
     Indication: Hepatitis C
     Dosage: 100 MG/ 40 MG, 3 TABLETS AT ONCE IN THE MORNING
     Route: 048
     Dates: start: 20240613, end: 20240626
  2. URSODIOL [Concomitant]
     Active Substance: URSODIOL
     Indication: Product used for unknown indication
     Dosage: 0.25 (UNKNOWN UNITS), 2 CAPS TWICE A DAY
  3. LAMIVUDINE [Concomitant]
     Active Substance: LAMIVUDINE
     Indication: Antiretroviral therapy
     Dates: start: 20240613, end: 20240626
  4. LAMIVUDINE [Concomitant]
     Active Substance: LAMIVUDINE
     Indication: Antiretroviral therapy
     Dates: start: 202406, end: 202406
  5. TENOFOVIR [Concomitant]
     Active Substance: TENOFOVIR
     Indication: Antiretroviral therapy
     Dates: start: 202406, end: 202406
  6. SPIRONOLACTONE [Concomitant]
     Active Substance: SPIRONOLACTONE
     Indication: Product used for unknown indication
     Dosage: 0.25 (UNKNOWN UNITS), 2 TABLETS
  7. TENOFOVIR\TENOFOVIR DISOPROXIL FUMARATE [Suspect]
     Active Substance: TENOFOVIR\TENOFOVIR DISOPROXIL FUMARATE
     Indication: Antiretroviral therapy
     Route: 065
     Dates: start: 20240613, end: 20240626
  8. PROPRANOLOL HYDROCHLORIDE [Concomitant]
     Active Substance: PROPRANOLOL HYDROCHLORIDE
     Indication: Product used for unknown indication
  9. ELSULFAVIRINE [Concomitant]
     Active Substance: ELSULFAVIRINE
     Indication: Antiretroviral therapy
     Dates: start: 202406
  10. DOLUTEGRAVIR [Concomitant]
     Active Substance: DOLUTEGRAVIR
     Indication: Antiretroviral therapy
     Dates: start: 202406, end: 202406
  11. TIVICAY [Suspect]
     Active Substance: DOLUTEGRAVIR SODIUM
     Indication: Antiretroviral therapy
     Route: 065
     Dates: start: 20240613, end: 20240626

REACTIONS (2)
  - Dermatitis allergic [Recovered/Resolved]
  - Eye disorder [Unknown]

NARRATIVE: CASE EVENT DATE: 20240621
